FAERS Safety Report 10414189 (Version 2)
Quarter: 2014Q3

REPORT INFORMATION
  Report Type: Spontaneous
  Country: US (occurrence: US)
  Receive Date: 20140827
  Receipt Date: 20140827
  Transmission Date: 20150326
  Serious: Yes (Hospitalization, Disabling, Other)
  Sender: FDA-Public Use
  Company Number: US-009507513-1202USA03900

PATIENT
  Sex: Female
  Weight: 54.43 kg

DRUGS (17)
  1. FOSAMAX [Suspect]
     Active Substance: ALENDRONATE SODIUM
     Indication: OSTEOPOROSIS
     Dosage: 70 MG, QW
     Route: 048
     Dates: start: 20071127
  2. FOSAMAX [Suspect]
     Active Substance: ALENDRONATE SODIUM
     Indication: OSTEOPENIA
     Dosage: 70 MG, UNK
     Route: 048
     Dates: start: 20100127, end: 201108
  3. OSTEO-BI-FLEX [Concomitant]
  4. ALENDRONATE SODIUM. [Suspect]
     Active Substance: ALENDRONATE SODIUM
     Indication: OSTEOPOROSIS
     Dosage: 70 MG, QW
     Route: 048
     Dates: start: 20080221
  5. WELLBUTRIN XL [Concomitant]
     Active Substance: BUPROPION HYDROCHLORIDE
     Dosage: 150-300
  6. FOSAMAX [Suspect]
     Active Substance: ALENDRONATE SODIUM
     Indication: OSTEOPENIA
  7. ARBONNE BIO NUTRIA JOINT FORMULA [Concomitant]
  8. PREMPRO [Concomitant]
     Active Substance: ESTROGENS, CONJUGATED\MEDROXYPROGESTERONE ACETATE
     Dosage: 0.45/1.5
     Dates: start: 20040103
  9. CALCIUM CITRATE (+) VITAMIN D (UNSPECIFIED) [Concomitant]
     Dosage: 1000 MG, UNK
     Dates: start: 2004
  10. HORMONES (UNSPECIFIED) [Concomitant]
     Active Substance: UNSPECIFIED INGREDIENT
     Dates: start: 1976
  11. MK-9278 [Concomitant]
     Active Substance: VITAMINS
  12. AMITIZA [Concomitant]
     Active Substance: LUBIPROSTONE
     Dosage: 24 ?G, BID
     Route: 048
  13. BONIVA [Suspect]
     Active Substance: IBANDRONATE SODIUM
     Indication: OSTEOPOROSIS
     Dosage: 150 MG, QM
     Dates: start: 20100324, end: 201103
  14. BONIVA [Suspect]
     Active Substance: IBANDRONATE SODIUM
     Indication: OSTEOPENIA
  15. ALENDRONATE SODIUM. [Suspect]
     Active Substance: ALENDRONATE SODIUM
     Indication: OSTEOPENIA
  16. FOSAMAX [Suspect]
     Active Substance: ALENDRONATE SODIUM
     Indication: OSTEOPOROSIS
     Dosage: 70 MG, QW
     Route: 048
     Dates: start: 20041108, end: 200711
  17. CHONDROITIN SULFATE SODIUM (+) GLUCOSAMINE SULFATE [Concomitant]
     Dosage: 1500/1250

REACTIONS (41)
  - Depression [Unknown]
  - Drug ineffective [Unknown]
  - Tonsillar disorder [Unknown]
  - Uterine disorder [Unknown]
  - Fatigue [Unknown]
  - Bronchospasm [Unknown]
  - Actinic keratosis [Unknown]
  - Low turnover osteopathy [Unknown]
  - Vulvovaginal mycotic infection [Unknown]
  - Drug ineffective [Unknown]
  - Laceration [Unknown]
  - Femur fracture [Recovered/Resolved with Sequelae]
  - Procedural haemorrhage [Unknown]
  - Loss of consciousness [Unknown]
  - Atrial septal defect [Unknown]
  - Dyspnoea exertional [Unknown]
  - Foot fracture [Unknown]
  - Detrusor sphincter dyssynergia [Unknown]
  - Dilatation atrial [Unknown]
  - Insomnia [Unknown]
  - Lymphadenopathy [Unknown]
  - Ovarian cyst [Unknown]
  - Micturition urgency [Unknown]
  - Dyspepsia [Unknown]
  - Nasal septum disorder [Unknown]
  - Anaemia [Not Recovered/Not Resolved]
  - Urinary incontinence [Unknown]
  - Adenoidal disorder [Unknown]
  - Abdominal pain upper [Unknown]
  - Foot fracture [Not Recovered/Not Resolved]
  - Anxiety [Unknown]
  - Menopause [Unknown]
  - Pyrexia [Unknown]
  - Vaginal haemorrhage [Unknown]
  - Neuralgia [Unknown]
  - Ear pain [Not Recovered/Not Resolved]
  - Ligament sprain [Unknown]
  - Pollakiuria [Unknown]
  - Ankle fracture [Unknown]
  - Injury [Unknown]
  - Lumbar radiculopathy [Recovering/Resolving]

NARRATIVE: CASE EVENT DATE: 200411
